FAERS Safety Report 19962518 (Version 1)
Quarter: 2021Q4

REPORT INFORMATION
  Report Type: Spontaneous
  Country: US (occurrence: US)
  Receive Date: 20211018
  Receipt Date: 20211018
  Transmission Date: 20220303
  Serious: Yes (Other)
  Sender: FDA-Public Use
  Company Number: US-SA-SAC20211012000920

PATIENT
  Age: 67 Year
  Sex: Male

DRUGS (1)
  1. ZANTAC [Suspect]
     Active Substance: RANITIDINE HYDROCHLORIDE
     Dosage: 75 MG, QD
     Dates: start: 200301, end: 201912

REACTIONS (4)
  - Bladder cancer [Unknown]
  - Renal cancer [Unknown]
  - Prostate cancer stage IV [Unknown]
  - Ureteric cancer [Unknown]

NARRATIVE: CASE EVENT DATE: 20111201
